FAERS Safety Report 8909176 (Version 2)
Quarter: 2013Q1

REPORT INFORMATION
  Report Type: Spontaneous
  Country: DE (occurrence: None)
  Receive Date: 20121107
  Receipt Date: 20130122
  Transmission Date: 20140127
  Serious: Yes (Hospitalization)
  Sender: FDA-Public Use
  Company Number: ACO_32756_2012

PATIENT
  Age: 69 Year
  Sex: Female

DRUGS (5)
  1. FAMPYRA [Suspect]
     Indication: GAIT DISTURBANCE
     Dates: start: 20120905, end: 20120906
  2. URBASON (METHYLPREDNISOLONE SODIUM SUCCINATE) [Concomitant]
  3. SIMVASTATIN (SIMVASTATIN) [Concomitant]
  4. RAMIPRIL (RAMIPRIL) [Concomitant]
  5. PRAMIPEXOLE (PRAMIPEXOLE DIHYDROCHLORIDE) [Concomitant]

REACTIONS (1)
  - Dyspnoea [None]
